FAERS Safety Report 11180422 (Version 1)
Quarter: 2015Q2

REPORT INFORMATION
  Report Type: Spontaneous
  Country: FR (occurrence: FR)
  Receive Date: 20150611
  Receipt Date: 20150611
  Transmission Date: 20150821
  Serious: Yes (Hospitalization)
  Sender: FDA-Public Use
  Company Number: FR-PFIZER INC-2015195631

PATIENT
  Age: 82 Year
  Sex: Male

DRUGS (13)
  1. CORDARONE [Suspect]
     Active Substance: AMIODARONE HYDROCHLORIDE
     Indication: ARRHYTHMIA SUPRAVENTRICULAR
     Dosage: UNK
     Route: 065
     Dates: start: 20120423, end: 20150127
  2. ESOMEPRAZOLE [Concomitant]
     Active Substance: ESOMEPRAZOLE
  3. BISOCE [Concomitant]
     Active Substance: BISOPROLOL
  4. FUNGIZONE [Concomitant]
     Active Substance: AMPHOTERICIN B
     Dosage: UNK
     Dates: end: 20150121
  5. DUPHALAC [Concomitant]
     Active Substance: LACTULOSE
  6. COUMADINE [Concomitant]
     Active Substance: WARFARIN SODIUM
  7. MAGNE B6 [Concomitant]
     Active Substance: MAGNESIUM\PYRIDOXINE
  8. FUROSEMIDE. [Concomitant]
     Active Substance: FUROSEMIDE
  9. LEVOTHYROX [Concomitant]
     Active Substance: LEVOTHYROXINE
  10. METOCLOPRAMIDE. [Concomitant]
     Active Substance: METOCLOPRAMIDE
  11. CANDESARTAN [Concomitant]
     Active Substance: CANDESARTAN
  12. KARDEGIC [Concomitant]
     Active Substance: ASPIRIN LYSINE
  13. ZOLPIDEM [Concomitant]
     Active Substance: ZOLPIDEM\ZOLPIDEM TARTRATE

REACTIONS (6)
  - Emphysema [Unknown]
  - Influenza [Unknown]
  - Acute kidney injury [Unknown]
  - Pulmonary fibrosis [Unknown]
  - Cardiopulmonary failure [Unknown]
  - Pulmonary mass [Unknown]

NARRATIVE: CASE EVENT DATE: 20150126
